FAERS Safety Report 11844023 (Version 1)
Quarter: 2015Q4

REPORT INFORMATION
  Report Type: Spontaneous
  Country: US (occurrence: None)
  Receive Date: 20151216
  Receipt Date: 20151216
  Transmission Date: 20160305
  Serious: Yes (Other)
  Sender: FDA-Public Use
  Company Number: None

PATIENT
  Sex: Male

DRUGS (2)
  1. TEMOZOLAMIDE 250MG TEVA [Suspect]
     Active Substance: TEMOZOLOMIDE
     Indication: BRAIN NEOPLASM MALIGNANT
     Dosage: DAILY X 5 DAYS
     Route: 048
     Dates: start: 201502, end: 201512
  2. TEMOZOLAMIDE 100MG TEVA [Suspect]
     Active Substance: TEMOZOLOMIDE

REACTIONS (1)
  - Neoplasm malignant [None]
